FAERS Safety Report 5299265-6 (Version None)
Quarter: 2007Q2

REPORT INFORMATION
  Report Type: 
  Country: None (occurrence: None)
  Receive Date: 20070417
  Receipt Date: 20070404
  Transmission Date: 20071010
  Serious: Yes (Other)
  Sender: FDA-Public Use
  Company Number: PHEH2007US04217

PATIENT
  Age: 43 Year
  Sex: Female

DRUGS (5)
  1. AVASTIN [Concomitant]
     Indication: MALIGNANT NEOPLASM OF SPINAL CORD
  2. HYDROXYUREA [Concomitant]
     Indication: MALIGNANT NEOPLASM OF SPINAL CORD
     Route: 048
  3. GLEEVEC [Suspect]
     Indication: MALIGNANT NEOPLASM OF SPINAL CORD
     Dosage: UNK, QD
     Route: 048
     Dates: start: 20070201
  4. GLEEVEC [Suspect]
     Dosage: UNK, NO TREATMENT
     Dates: start: 20070201
  5. GLEEVEC [Suspect]
     Dosage: UNK, QD
     Route: 048
     Dates: start: 20070327

REACTIONS (3)
  - MYDRIASIS [None]
  - PUPILS UNEQUAL [None]
  - STOMACH DISCOMFORT [None]
